FAERS Safety Report 6031988-3 (Version None)
Quarter: 2009Q1

REPORT INFORMATION
  Report Type: 
  Country: None (occurrence: None)
  Receive Date: 20090107
  Receipt Date: 20081222
  Transmission Date: 20090719
  Serious: Yes (Other)
  Sender: FDA-Public Use
  Company Number: 8040783

PATIENT
  Age: 17 Year
  Sex: Female

DRUGS (3)
  1. PREDNISOLONE [Suspect]
     Indication: IDIOPATHIC THROMBOCYTOPENIC PURPURA
     Dosage: 30 MG /D
  2. PREDNISOLONE [Suspect]
     Indication: IDIOPATHIC THROMBOCYTOPENIC PURPURA
     Dosage: 60 MG /D
  3. CYCLOSPORINE [Suspect]
     Dosage: 150 MG /D

REACTIONS (4)
  - BONE EROSION [None]
  - JOINT EFFUSION [None]
  - MALOCCLUSION [None]
  - OSTEONECROSIS [None]
